FAERS Safety Report 6301107-4 (Version None)
Quarter: 2009Q3

REPORT INFORMATION
  Report Type: 
  Country: None (occurrence: None)
  Receive Date: 20090807
  Receipt Date: 20090803
  Transmission Date: 20100115
  Serious: Yes (Death)
  Sender: FDA-Public Use
  Company Number: PHEH2009US08476

PATIENT
  Sex: Male

DRUGS (3)
  1. AFINITOR [Suspect]
     Dosage: 10 MG, QD
     Route: 048
  2. AFINITOR [Suspect]
     Dosage: 10 MG, QD
     Route: 048
  3. RADIATION THERAPY [Concomitant]

REACTIONS (3)
  - DIARRHOEA [None]
  - GASTROINTESTINAL HAEMORRHAGE [None]
  - VOMITING [None]
